FAERS Safety Report 10606474 (Version 1)
Quarter: 2014Q4

REPORT INFORMATION
  Report Type: Spontaneous
  Country: US (occurrence: None)
  Receive Date: 20141124
  Receipt Date: 20141124
  Transmission Date: 20150529
  Serious: Yes (Disabling, Other)
  Sender: FDA-Public Use
  Company Number: None

PATIENT
  Age: 22 Year
  Sex: Female
  Weight: 61.24 kg

DRUGS (1)
  1. ASACOL HD [Suspect]
     Active Substance: MESALAMINE
     Indication: COLITIS ULCERATIVE
     Dosage: 2 TABLETS
     Route: 048
     Dates: start: 20130424, end: 20141104

REACTIONS (1)
  - Lupus-like syndrome [None]

NARRATIVE: CASE EVENT DATE: 20141015
